FAERS Safety Report 6193865-7 (Version None)
Quarter: 2009Q2

REPORT INFORMATION
  Report Type: 
  Country: None (occurrence: None)
  Receive Date: 20090514
  Receipt Date: 20090430
  Transmission Date: 20091009
  Serious: Yes (Other)
  Sender: FDA-Public Use
  Company Number: 1022556-2009-00031

PATIENT
  Sex: Male
  Weight: 96.6162 kg

DRUGS (2)
  1. ICY HOT NO MESS APPLICATOR [Suspect]
     Indication: ANALGESIA
     Dosage: 1 X, TOPICAL;  WEEK OF 4/26/2009
     Route: 061
     Dates: start: 20090426
  2. VICODIN TID [Concomitant]

REACTIONS (1)
  - CAUSTIC INJURY [None]
